FAERS Safety Report 5982526-2 (Version None)
Quarter: 2008Q4

REPORT INFORMATION
  Report Type: 
  Country: None (occurrence: None)
  Receive Date: 20081205
  Receipt Date: 20081205
  Transmission Date: 20090506
  Serious: No
  Sender: FDA-Public Use
  Company Number: None

PATIENT
  Sex: Female
  Weight: 73.0291 kg

DRUGS (2)
  1. OCCELLA [Suspect]
     Indication: DYSMENORRHOEA
     Dosage: 1/1 PO Q DAY PO
     Route: 048
     Dates: start: 20080501, end: 20081001
  2. OCCELLA [Suspect]
     Indication: ORAL CONTRACEPTION
     Dosage: 1/1 PO Q DAY PO
     Route: 048
     Dates: start: 20080501, end: 20081001

REACTIONS (3)
  - ACNE [None]
  - MUSCLE SPASMS [None]
  - THERAPEUTIC RESPONSE UNEXPECTED WITH DRUG SUBSTITUTION [None]
